FAERS Safety Report 15615446 (Version 2)
Quarter: 2018Q4

REPORT INFORMATION
  Report Type: Report from Study
  Country: US (occurrence: US)
  Receive Date: 20181114
  Receipt Date: 20181204
  Transmission Date: 20190205
  Serious: Yes (Other)
  Sender: FDA-Public Use
  Company Number: US-AMGEN INC.-USASL2018139308

PATIENT
  Age: 61 Year
  Sex: Female
  Weight: 76.19 kg

DRUGS (13)
  1. PROZAC [Concomitant]
     Active Substance: FLUOXETINE HYDROCHLORIDE
     Dosage: 40 MG, QD (PULVULE)
  2. POTASSIUM CITRATE. [Concomitant]
     Active Substance: POTASSIUM CITRATE
     Dosage: 15 MEQ, BID
  3. ACTEMRA [Concomitant]
     Active Substance: TOCILIZUMAB
     Dosage: 20 MG, QMO (VIAL)
  4. AIMOVIG [Suspect]
     Active Substance: ERENUMAB-AOOE
     Indication: MIGRAINE PROPHYLAXIS
     Dosage: 140 MG, QMO
     Route: 030
     Dates: start: 20180814, end: 20180914
  5. LIDODERM [Concomitant]
     Active Substance: LIDOCAINE
     Dosage: UNK, AS NECESSARY (1-3 PATCHES TO AFFECTED AREA(S) FOR 12HR ON AND 12HR- OFF PRN)
  6. CYCLOBENZAPRINE. [Concomitant]
     Active Substance: CYCLOBENZAPRINE
     Dosage: 5 MG, UNK (TAKE 1 TO 2 AT NIGHT BEFORE BED)
  7. HYDROCODONE/ACETAMINOPHEN [Concomitant]
     Active Substance: ACETAMINOPHEN\HYDROCODONE
     Dosage: 10-325 MG, Q4HRS AS NECESSARY
  8. ZYRTEC [Concomitant]
     Active Substance: CETIRIZINE HYDROCHLORIDE
     Dosage: 10 MG, QD
  9. WELLBUTRIN [Concomitant]
     Active Substance: BUPROPION HYDROCHLORIDE
     Dosage: 100 MG, QD (TAKE ONE DAILY)
  10. METHOTREXATE. [Concomitant]
     Active Substance: METHOTREXATE
     Dosage: 10 MG, QWK
  11. SYNTHROID [Concomitant]
     Active Substance: LEVOTHYROXINE SODIUM
     Dosage: 50 MUG, QD
  12. BUTORPHANOL [Concomitant]
     Active Substance: BUTORPHANOL
     Indication: MIGRAINE
     Dosage: 10 MG, Q6H (ONE SPRAY IN ONE NOSTRIL Q6HR PRN)
     Route: 045
  13. ROBAXIN [Concomitant]
     Active Substance: METHOCARBAMOL
     Dosage: 500 MG, TID

REACTIONS (18)
  - Spinal osteoarthritis [Unknown]
  - Anxiety [Unknown]
  - Headache [Unknown]
  - Intervertebral disc degeneration [Unknown]
  - Dry mouth [Unknown]
  - Spondylolisthesis [Unknown]
  - Cervical spinal stenosis [Unknown]
  - Intervertebral disc displacement [Unknown]
  - Post herpetic neuralgia [Unknown]
  - Constipation [Recovered/Resolved]
  - Thirst [Unknown]
  - Bone pain [Unknown]
  - Skin abrasion [Unknown]
  - Incorrect route of product administration [Unknown]
  - Sacroiliitis [Unknown]
  - Fatigue [Unknown]
  - Rotator cuff syndrome [Unknown]
  - Ear neoplasm [Unknown]

NARRATIVE: CASE EVENT DATE: 2018
